FAERS Safety Report 15154483 (Version 3)
Quarter: 2019Q3

REPORT INFORMATION
  Report Type: Spontaneous
  Country: US (occurrence: US)
  Receive Date: 20180717
  Receipt Date: 20190705
  Transmission Date: 20191004
  Serious: Yes (Death, Other)
  Sender: FDA-Public Use
  Company Number: US-ELI_LILLY_AND_COMPANY-US201807006589

PATIENT
  Sex: Male

DRUGS (3)
  1. CIALIS [Suspect]
     Active Substance: TADALAFIL
     Indication: ERECTILE DYSFUNCTION
     Dosage: UNK UNK, 2-3 TIMES PER MONTH
     Route: 065
     Dates: start: 20060801, end: 20080901
  2. VIAGRA [Suspect]
     Active Substance: SILDENAFIL CITRATE
     Dosage: UNK UNK, 2-3 TIMES PER MONTH
     Route: 065
     Dates: start: 20090730, end: 20090730
  3. VIAGRA [Suspect]
     Active Substance: SILDENAFIL CITRATE
     Indication: PRODUCT USED FOR UNKNOWN INDICATION
     Dosage: UNK UNK, 2-3 TIMES PER MONTH
     Route: 065
     Dates: start: 20060202, end: 20060707

REACTIONS (2)
  - Malignant melanoma [Fatal]
  - Malignant melanoma stage II [Fatal]

NARRATIVE: CASE EVENT DATE: 20080529
